FAERS Safety Report 6907328-1 (Version None)
Quarter: 2010Q3

REPORT INFORMATION
  Report Type: 
  Country: None (occurrence: None)
  Receive Date: 20100730
  Receipt Date: 20100727
  Transmission Date: 20110219
  Serious: Yes (Hospitalization)
  Sender: FDA-Public Use
  Company Number: WAES1005USA02992

PATIENT
  Age: 58 Year
  Sex: Female
  Weight: 88.905 kg

DRUGS (11)
  1. DECADRON [Suspect]
     Dosage: 4 MG/BID/PO`
     Route: 048
     Dates: start: 20100129
  2. THERAPEUTIC RADIOPHARMACEUTICAL (UNSPECIFIED) UNK [Suspect]
     Dosage: /5XW/
     Dates: start: 20100203, end: 20100219
  3. MS CONTIN UNK [Suspect]
     Dosage: 45 MG/BID/PO
     Route: 048
     Dates: start: 20100129
  4. REMERON [Suspect]
     Dosage: 50 MG/PRN/PO
     Route: 048
     Dates: start: 20100129
  5. DILANTIN [Suspect]
     Dates: end: 20100314
  6. KEPPRA [Suspect]
     Dosage: 1500 MG/BID/PO
     Route: 048
  7. ADVAIR HFA [Suspect]
     Dosage: /PRN/INH INHL
     Route: 055
     Dates: start: 20100127
  8. ALBUTEROL [Suspect]
     Dosage: /TID/INH
     Route: 055
     Dates: start: 20100129
  9. BLINDED THERAPY UNK [Suspect]
     Indication: PROPHYLAXIS
     Dates: start: 20100203
  10. SPIRIVA [Suspect]
     Dosage: 1 PUFF/DAILY/INH
     Route: 055
     Dates: start: 20100129
  11. LEVAQUIN [Suspect]

REACTIONS (14)
  - ATELECTASIS [None]
  - BLOOD PRESSURE DIASTOLIC DECREASED [None]
  - BODY TEMPERATURE INCREASED [None]
  - HAEMATOCRIT DECREASED [None]
  - HAEMOGLOBIN DECREASED [None]
  - INTERNATIONAL NORMALISED RATIO INCREASED [None]
  - LYMPHADENOPATHY [None]
  - MOBILITY DECREASED [None]
  - PLATELET COUNT DECREASED [None]
  - PULMONARY CONGESTION [None]
  - PULMONARY EMBOLISM [None]
  - PULMONARY MASS [None]
  - RED BLOOD CELL COUNT DECREASED [None]
  - WHITE BLOOD CELL COUNT INCREASED [None]
